FAERS Safety Report 16778586 (Version 3)
Quarter: 2019Q3

REPORT INFORMATION
  Report Type: Report from Study
  Country: IT (occurrence: IT)
  Receive Date: 20190906
  Receipt Date: 20190918
  Transmission Date: 20191005
  Serious: Yes (Hospitalization)
  Sender: FDA-Public Use
  Company Number: IT-ROCHE-2073031

PATIENT
  Age: 77 Year
  Sex: Male
  Weight: 82 kg

DRUGS (30)
  1. BACTRIM [Concomitant]
     Active Substance: SULFAMETHOXAZOLE\TRIMETHOPRIM
     Indication: ANTIBIOTIC PROPHYLAXIS
     Route: 048
     Dates: start: 20160328
  2. SEREVENT DISKUS [Concomitant]
     Active Substance: SALMETEROL XINAFOATE
     Indication: CHRONIC OBSTRUCTIVE PULMONARY DISEASE
     Route: 065
     Dates: start: 20160530, end: 2016
  3. FUROSEMIDE. [Concomitant]
     Active Substance: FUROSEMIDE
     Route: 048
     Dates: start: 20170502, end: 20171124
  4. ALLOPURINOLO [Concomitant]
     Active Substance: ALLOPURINOL
     Indication: PROPHYLAXIS
     Route: 048
     Dates: start: 20160321
  5. VALSARTAN. [Concomitant]
     Active Substance: VALSARTAN
     Route: 048
     Dates: start: 20170502
  6. PANTOPRAZOLE [Concomitant]
     Active Substance: PANTOPRAZOLE
     Dosage: FOR: ULCER PROPHYLAXIS
     Route: 048
     Dates: start: 20160629, end: 20171202
  7. FUROSEMIDE. [Concomitant]
     Active Substance: FUROSEMIDE
     Route: 048
     Dates: start: 20171202
  8. AMLODIPINA [AMLODIPINE] [Concomitant]
     Route: 048
     Dates: start: 20171202
  9. FLUCONAZOLE. [Concomitant]
     Active Substance: FLUCONAZOLE
     Indication: BODY TINEA
     Route: 048
     Dates: start: 20160811
  10. FLUTICASONE. [Concomitant]
     Active Substance: FLUTICASONE
     Indication: PNEUMONIA
     Route: 050
     Dates: start: 20170502
  11. BISOPROLOL [Concomitant]
     Active Substance: BISOPROLOL
     Dosage: FOR: CARDIAC FAILURE PROPHYLAXIS
     Route: 048
     Dates: start: 20170502, end: 20171202
  12. BISOPROLOL [Concomitant]
     Active Substance: BISOPROLOL
     Dosage: FOR: CARDIAC FAILURE PROPHYLAXIS
     Route: 048
     Dates: start: 20170930
  13. FLUTICASONE;SALMETEROL [Concomitant]
     Active Substance: FLUTICASONE PROPIONATE\SALMETEROL XINAFOATE
     Indication: VERTEBROBASILAR INSUFFICIENCY
     Dosage: 1 PUFF
     Route: 065
     Dates: start: 20170930
  14. OBINUTUZUMAB. [Suspect]
     Active Substance: OBINUTUZUMAB
     Indication: CHRONIC LYMPHOCYTIC LEUKAEMIA
     Dosage: 100 MG OR 1000 MG, DEPENDING ON SPLITTING RULES, AT CYCLE 1, DAY 1 (IF 100 MG WAS RECEIVED ON DAY 1,
     Route: 042
     Dates: start: 20160324
  15. COMBISARTAN [Concomitant]
     Active Substance: HYDROCHLOROTHIAZIDE\VALSARTAN
     Indication: PROPHYLAXIS
     Route: 048
     Dates: start: 20170502
  16. CHLORAMBUCIL [Suspect]
     Active Substance: CHLORAMBUCIL
     Indication: CHRONIC LYMPHOCYTIC LEUKAEMIA
     Dosage: DAY 1 AND DAY 15 AT OF EACH 28 DAY CYCLE FOR 12 CYCLES?MOST RECENT DOSE OF CHLORAMBUCIL  28 MG PRIOR
     Route: 048
     Dates: start: 20160324
  17. ALLOPURINOLO [Concomitant]
     Active Substance: ALLOPURINOL
     Route: 048
     Dates: start: 20160326, end: 2016
  18. RIVAROXABAN [Concomitant]
     Active Substance: RIVAROXABAN
     Dosage: AS AN ANTICOAGULANT
     Route: 048
     Dates: start: 20170502
  19. FUROSEMIDE. [Concomitant]
     Active Substance: FUROSEMIDE
     Dosage: FOR: RENAL FAILURE PROPHYLAXIS
     Route: 048
     Dates: start: 20170502
  20. XARELTO [Concomitant]
     Active Substance: RIVAROXABAN
     Indication: ATRIAL FIBRILLATION
     Route: 048
     Dates: start: 20161221
  21. RIVAROXABAN [Concomitant]
     Active Substance: RIVAROXABAN
     Indication: ATRIAL FIBRILLATION
     Route: 048
     Dates: start: 20160930
  22. AMLODIPINA [AMLODIPINE] [Concomitant]
     Indication: HYPERTENSION
     Route: 048
     Dates: start: 20160530
  23. PANTOPRAZOLE [Concomitant]
     Active Substance: PANTOPRAZOLE
     Dosage: FOR: ULCER PROPHYLAXIS
     Route: 048
     Dates: start: 20171202
  24. FUROSEMIDE. [Concomitant]
     Active Substance: FUROSEMIDE
     Indication: RENAL FAILURE
     Route: 048
  25. ACICLOVIR [Concomitant]
     Active Substance: ACYCLOVIR
     Indication: ANTIVIRAL PROPHYLAXIS
     Route: 048
     Dates: start: 20160326
  26. VALSARTAN. [Concomitant]
     Active Substance: VALSARTAN
     Indication: HYPERTENSION
     Route: 048
     Dates: start: 20160530, end: 20171202
  27. VILANTEROL [Concomitant]
     Active Substance: VILANTEROL TRIFENATATE
     Indication: PNEUMONIA
     Route: 050
     Dates: start: 20170502
  28. FLUTICASONE FUROATE;VILANTEROL TRIFENATATE [Concomitant]
     Active Substance: FLUTICASONE FUROATE\VILANTEROL TRIFENATATE
     Indication: CHRONIC OBSTRUCTIVE PULMONARY DISEASE
     Dosage: 1 PUFF
     Route: 065
     Dates: start: 20170502
  29. ESCITALOPRAM [Concomitant]
     Active Substance: ESCITALOPRAM OXALATE
     Indication: DEPRESSION
     Route: 048
     Dates: start: 20171202, end: 20171206
  30. PARACETAMOL [Concomitant]
     Active Substance: ACETAMINOPHEN
     Dosage: ANTI INFLAMMATORY
     Route: 048
     Dates: start: 20171202

REACTIONS (1)
  - Vertebrobasilar insufficiency [Recovered/Resolved]

NARRATIVE: CASE EVENT DATE: 20171124
